FAERS Safety Report 8428101-1 (Version None)
Quarter: 2012Q2

REPORT INFORMATION
  Report Type: 
  Country: None (occurrence: None)
  Receive Date: 20120611
  Receipt Date: 20120418
  Transmission Date: 20120825
  Serious: No
  Sender: FDA-Public Use
  Company Number: US-ASTRAZENECA-2012SE25673

PATIENT
  Age: 57 Year
  Sex: Female
  Weight: 67.1 kg

DRUGS (6)
  1. RHINOCORT [Suspect]
     Indication: HYPERSENSITIVITY
     Dosage: 1 SPRAY EACH NOSTRIL
     Route: 045
     Dates: start: 20041201
  2. CLARITIN [Concomitant]
  3. NASONEX [Concomitant]
  4. VAGIFEM [Concomitant]
  5. PATANOL [Concomitant]
  6. ACETAMINOPHEN [Concomitant]

REACTIONS (4)
  - DYSPNOEA [None]
  - PALPITATIONS [None]
  - OFF LABEL USE [None]
  - DIZZINESS [None]
